FAERS Safety Report 20736200 (Version 1)
Quarter: 2022Q2

REPORT INFORMATION
  Report Type: Spontaneous
  Country: US (occurrence: None)
  Receive Date: 20220421
  Receipt Date: 20220421
  Transmission Date: 20220721
  Serious: Yes (Life-Threatening, Disabling, Other)
  Sender: FDA-Public Use
  Company Number: None

PATIENT
  Age: 50 Year
  Sex: Male
  Weight: 63 kg

DRUGS (1)
  1. VEDOLIZUMAB [Suspect]
     Active Substance: VEDOLIZUMAB
     Indication: Inflammatory bowel disease
     Dosage: OTHER FREQUENCY : MONTHLY;?OTHER ROUTE : IV;?
     Route: 050
     Dates: start: 20191114, end: 20210202

REACTIONS (3)
  - Dyspnoea [None]
  - Traumatic lung injury [None]
  - Interstitial lung disease [None]

NARRATIVE: CASE EVENT DATE: 20191114
